FAERS Safety Report 19980061 (Version 6)
Quarter: 2022Q2

REPORT INFORMATION
  Report Type: Report from Study
  Country: US (occurrence: US)
  Receive Date: 20211021
  Receipt Date: 20220407
  Transmission Date: 20220720
  Serious: No
  Sender: FDA-Public Use
  Company Number: US-NOVARTISTESTPH-NVSC2021US240217

PATIENT
  Age: 72 Year
  Sex: Male

DRUGS (2)
  1. ENTRESTO [Suspect]
     Active Substance: SACUBITRIL\VALSARTAN
     Indication: Cardiac failure
     Dosage: 50 MG, BID (24/26 MG)
     Route: 048
     Dates: start: 20210805
  2. ENTRESTO [Suspect]
     Active Substance: SACUBITRIL\VALSARTAN
     Dosage: 50 MG, BID (24/26 MG)
     Route: 048
     Dates: start: 20210930, end: 20211105

REACTIONS (6)
  - Chromaturia [Recovering/Resolving]
  - Blood urine present [Recovering/Resolving]
  - Epistaxis [Recovering/Resolving]
  - Weight decreased [Unknown]
  - Glycosylated haemoglobin increased [Unknown]
  - Cough [Unknown]

NARRATIVE: CASE EVENT DATE: 20210810
